FAERS Safety Report 15485083 (Version 1)
Quarter: 2018Q4

REPORT INFORMATION
  Report Type: Spontaneous
  Country: US (occurrence: US)
  Receive Date: 20181010
  Receipt Date: 20181010
  Transmission Date: 20190205
  Serious: No
  Sender: FDA-Public Use
  Company Number: US-ROCHE-2124889

PATIENT
  Sex: Male

DRUGS (16)
  1. ESBRIET [Suspect]
     Active Substance: PIRFENIDONE
     Indication: IDIOPATHIC PULMONARY FIBROSIS
     Dosage: 1 TAB TID; PRESENT FOR 1 WEEK
     Route: 048
     Dates: start: 20180402
  2. ESBRIET [Suspect]
     Active Substance: PIRFENIDONE
     Dosage: 3 TAB TID DAILY
     Route: 048
  3. OMEPRAZOLE. [Concomitant]
     Active Substance: OMEPRAZOLE
     Dosage: OMEPRAZOLE CPD
     Route: 065
  4. ORPHENADRINE [Concomitant]
     Active Substance: ORPHENADRINE
     Dosage: ORPHENADRINE TB1
     Route: 065
  5. VITAMIN D3 [Concomitant]
     Active Substance: CHOLECALCIFEROL
     Dosage: 100000 UNI
     Route: 065
  6. ESBRIET [Suspect]
     Active Substance: PIRFENIDONE
     Dosage: 2 TAB TID FOR 1 WEEK
     Route: 048
  7. DOXEPIN HCL [Concomitant]
     Active Substance: DOXEPIN HYDROCHLORIDE
     Route: 065
  8. IBUPROFEN. [Concomitant]
     Active Substance: IBUPROFEN
     Route: 065
  9. MICROZIDE CAPSULES [Concomitant]
     Route: 065
  10. FOLIC ACID. [Concomitant]
     Active Substance: FOLIC ACID
     Route: 065
  11. ESBRIET [Suspect]
     Active Substance: PIRFENIDONE
     Dosage: 3 TAB TID DAILY
     Route: 048
     Dates: start: 20180514
  12. METFORMIN HYDROCHLORIDE. [Concomitant]
     Active Substance: METFORMIN HYDROCHLORIDE
     Route: 065
  13. PROPRANOLOL [Concomitant]
     Active Substance: PROPRANOLOL HYDROCHLORIDE
     Route: 065
  14. SEREVENT DISKUS [Concomitant]
     Active Substance: SALMETEROL XINAFOATE
     Dosage: SEREVENT DIS AEP
     Route: 065
  15. VALSARTAN. [Concomitant]
     Active Substance: VALSARTAN
     Route: 065
  16. LORATADINE. [Concomitant]
     Active Substance: LORATADINE
     Route: 065

REACTIONS (3)
  - Vomiting [Not Recovered/Not Resolved]
  - Nausea [Recovered/Resolved]
  - Throat irritation [Recovered/Resolved]
